FAERS Safety Report 6341925-X (Version None)
Quarter: 2009Q3

REPORT INFORMATION
  Report Type: 
  Country: None (occurrence: None)
  Receive Date: 20090904
  Receipt Date: 20090826
  Transmission Date: 20100115
  Serious: Yes (Other)
  Sender: FDA-Public Use
  Company Number: PHHY2009DE19324

PATIENT
  Sex: Male
  Weight: 89.7 kg

DRUGS (3)
  1. SANDIMMUNE [Suspect]
     Indication: HEART TRANSPLANT
     Dosage: 100 MG, BID
     Route: 048
  2. METAMIZOLE [Interacting]
     Indication: PAIN
     Dosage: 3250 MG/DAY
     Route: 048
     Dates: start: 20090422, end: 20090508
  3. ANTIBIOTICS [Concomitant]

REACTIONS (5)
  - DRUG INTERACTION [None]
  - FOOT AMPUTATION [None]
  - IMMUNOSUPPRESSANT DRUG LEVEL DECREASED [None]
  - PAIN [None]
  - WOUND INFECTION [None]
